FAERS Safety Report 25005262 (Version 1)
Quarter: 2025Q1

REPORT INFORMATION
  Report Type: Report from Study
  Country: GB (occurrence: GB)
  Receive Date: 20250224
  Receipt Date: 20250224
  Transmission Date: 20250408
  Serious: Yes (Hospitalization)
  Sender: ALEXION PHARMACEUTICALS
  Company Number: GB-AstraZeneca-CH-00809893A

PATIENT

DRUGS (2)
  1. FASENRA [Interacting]
     Active Substance: BENRALIZUMAB
     Indication: Asthma
  2. THEOPHYLLINE ANHYDROUS [Interacting]
     Active Substance: THEOPHYLLINE ANHYDROUS
     Route: 065

REACTIONS (2)
  - Drug interaction [Unknown]
  - Overdose [Unknown]
